FAERS Safety Report 18437036 (Version 1)
Quarter: 2020Q4

REPORT INFORMATION
  Report Type: Spontaneous
  Country: CA (occurrence: CA)
  Receive Date: 20201028
  Receipt Date: 20201028
  Transmission Date: 20210114
  Serious: Yes (Hospitalization)
  Sender: FDA-Public Use
  Company Number: CA-009507513-2010CAN010339

PATIENT
  Age: 81 Year
  Sex: Female
  Weight: 36 kg

DRUGS (2)
  1. KEYTRUDA [Suspect]
     Active Substance: PEMBROLIZUMAB
     Indication: SQUAMOUS CELL CARCINOMA
     Dosage: 163 (UNITS NOT REPORTED); (4 ML SINGLE USE VIAL); DOSAGE FORM: SOLUTION INTRAVENOUS
     Route: 042
  2. KEYTRUDA [Suspect]
     Active Substance: PEMBROLIZUMAB
     Indication: NON-SMALL CELL LUNG CANCER

REACTIONS (6)
  - Transaminases increased [Unknown]
  - Blood bilirubin increased [Unknown]
  - Asthenia [Unknown]
  - Hepatic enzyme abnormal [Unknown]
  - Jaundice [Unknown]
  - Therapy change [Unknown]
